FAERS Safety Report 24112423 (Version 1)
Quarter: 2024Q3

REPORT INFORMATION
  Report Type: Report from Study
  Country: US (occurrence: None)
  Receive Date: 20240719
  Receipt Date: 20240719
  Transmission Date: 20241017
  Serious: Yes (Other)
  Sender: ASTRAZENECA
  Company Number: 2021A032239

PATIENT
  Age: 43 Year
  Sex: Female

DRUGS (3)
  1. FASENRA [Suspect]
     Active Substance: BENRALIZUMAB
     Indication: Asthma
     Route: 058
     Dates: start: 20191017
  2. GABAPENTIN [Concomitant]
     Active Substance: GABAPENTIN
  3. OTEZLA [Concomitant]
     Active Substance: APREMILAST

REACTIONS (2)
  - Ovarian cyst [Unknown]
  - Asthma [Unknown]
